FAERS Safety Report 7860993-7 (Version None)
Quarter: 2011Q4

REPORT INFORMATION
  Report Type: 
  Country: None (occurrence: None)
  Receive Date: 20111027
  Receipt Date: 20111020
  Transmission Date: 20120403
  Serious: Yes (Other)
  Sender: FDA-Public Use
  Company Number: US-VIIV HEALTHCARE LIMITED-A0950137A

PATIENT
  Sex: Male

DRUGS (5)
  1. KALETRA [Suspect]
     Indication: ANTIRETROVIRAL THERAPY
     Route: 064
     Dates: start: 20110421, end: 20110428
  2. PREZISTA [Suspect]
     Indication: ANTIRETROVIRAL THERAPY
     Dosage: 800MGD PER DAY
     Route: 064
     Dates: start: 20110428
  3. NORVIR [Suspect]
     Indication: ANTIRETROVIRAL THERAPY
     Route: 064
     Dates: start: 20110428
  4. COMBIVIR [Suspect]
     Indication: ANTIRETROVIRAL THERAPY
     Route: 064
     Dates: start: 20110421, end: 20110915
  5. ZIDOVUDINE [Concomitant]
     Indication: PROPHYLAXIS
     Route: 064
     Dates: start: 20110915, end: 20110915

REACTIONS (3)
  - PREMATURE BABY [None]
  - FOETAL GROWTH RESTRICTION [None]
  - MATERNAL EXPOSURE DURING PREGNANCY [None]
